FAERS Safety Report 10130946 (Version 2)
Quarter: 2014Q2

REPORT INFORMATION
  Report Type: Report from Study
  Country: US (occurrence: US)
  Receive Date: 20140428
  Receipt Date: 20140507
  Transmission Date: 20141212
  Serious: Yes (Death)
  Sender: FDA-Public Use
  Company Number: US-SA-2014SA053199

PATIENT
  Age: 74 Year
  Sex: Male

DRUGS (12)
  1. AMIODARONE HYDROCHLORIDE [Suspect]
     Indication: ATRIAL FIBRILLATION
     Dates: start: 20140110
  2. AMIODARONE HYDROCHLORIDE [Suspect]
     Indication: ATRIAL FIBRILLATION
     Dates: start: 20140327, end: 20140404
  3. LORTAB [Concomitant]
  4. GABAPENTIN [Concomitant]
  5. FUROSEMIDE [Concomitant]
  6. ACETAMINOPHEN W/HYDROCODONE [Concomitant]
  7. FAMOTIDINE [Concomitant]
  8. FLOMAX [Concomitant]
  9. ASPIRIN [Concomitant]
  10. ZOCOR [Concomitant]
  11. NITROSTAT [Concomitant]
     Indication: CHEST PAIN
  12. POTASSIUM CITRATE [Concomitant]

REACTIONS (1)
  - Respiratory failure [Fatal]
